FAERS Safety Report 21587875 (Version 1)
Quarter: 2022Q4

REPORT INFORMATION
  Report Type: Spontaneous
  Country: DE (occurrence: DE)
  Receive Date: 20221114
  Receipt Date: 20221114
  Transmission Date: 20230113
  Serious: Yes (Other)
  Sender: FDA-Public Use
  Company Number: DE-ORGANON-O2112DEU002210

PATIENT
  Age: 88 Year
  Sex: Female
  Weight: 41 kg

DRUGS (7)
  1. EZETIMIBE [Suspect]
     Active Substance: EZETIMIBE
     Dosage: UNK, IN THE MORNING (QAM)
     Route: 048
     Dates: start: 20200730, end: 20220530
  2. ATORVASTATIN [Concomitant]
     Active Substance: ATORVASTATIN
     Dosage: IN THE EVENING (QPM)
  3. ASPIRIN [Concomitant]
     Active Substance: ASPIRIN
     Dosage: IN THE MORNING (QAM)
     Dates: start: 202107
  4. VITAMIN D3 [Concomitant]
     Active Substance: CHOLECALCIFEROL
     Dosage: ONCE A WEEK
  5. FERROUS GLYCINE SULFATE [Concomitant]
     Active Substance: FERROUS GLYCINE SULFATE
     Dosage: 100 MILLIGRAM, QPM
  6. DULCOLAX (BISACODYL) [Concomitant]
     Active Substance: BISACODYL
     Dosage: 0-0-2, TWICE A WEEK
  7. ESTRADIOL [Concomitant]
     Active Substance: ESTRADIOL
     Dosage: UNK
     Dates: end: 2022

REACTIONS (12)
  - Uterine cancer [Unknown]
  - Myalgia [Not Recovered/Not Resolved]
  - Peripheral swelling [Unknown]
  - Myalgia [Unknown]
  - Therapeutic product effect decreased [Unknown]
  - Speech disorder [Unknown]
  - Memory impairment [Unknown]
  - Stress [Unknown]
  - Myalgia [Recovered/Resolved]
  - Contusion [Unknown]
  - Dyspnoea [Unknown]
  - Hypertension [Unknown]

NARRATIVE: CASE EVENT DATE: 20220701
